FAERS Safety Report 9387382 (Version 2)
Quarter: 2013Q4

REPORT INFORMATION
  Report Type: Spontaneous
  Country: US (occurrence: US)
  Receive Date: 20130708
  Receipt Date: 20131008
  Transmission Date: 20140711
  Serious: No
  Sender: FDA-Public Use
  Company Number: US-GLAXOSMITHKLINE-A1021872A

PATIENT
  Age: 55 Year
  Sex: Female

DRUGS (1)
  1. POTIGA [Suspect]
     Indication: CONVULSION
     Route: 048

REACTIONS (1)
  - Hepatic enzyme increased [Unknown]
